FAERS Safety Report 4997463-X (Version None)
Quarter: 2006Q2

REPORT INFORMATION
  Report Type: 
  Country: None (occurrence: None)
  Receive Date: 20060509
  Receipt Date: 20060119
  Transmission Date: 20061013
  Serious: Yes (Life-Threatening, Hospitalization)
  Sender: FDA-Public Use
  Company Number: US-MERCK-0601USA02453

PATIENT
  Age: 79 Year
  Sex: Female
  Weight: 82 kg

DRUGS (8)
  1. VIOXX [Suspect]
     Indication: ARTHRITIS
     Route: 048
     Dates: start: 20020101, end: 20040930
  2. TOPROL-XL [Concomitant]
     Indication: BLOOD PRESSURE
     Route: 065
     Dates: start: 20000101
  3. COZAAR [Concomitant]
     Indication: BLOOD PRESSURE
     Route: 048
     Dates: start: 20030101
  4. ALLEGRA [Concomitant]
     Route: 065
  5. PREDNISONE [Concomitant]
     Indication: ARTHRITIS
     Route: 048
  6. LOPRESSOR [Concomitant]
     Indication: BLOOD PRESSURE
     Route: 065
  7. LASIX [Concomitant]
     Route: 048
     Dates: start: 19960101
  8. TYLENOL (CAPLET) [Concomitant]
     Route: 065
     Dates: start: 19810101

REACTIONS (13)
  - APHASIA [None]
  - BLOOD TRIGLYCERIDES INCREASED [None]
  - BRONCHITIS [None]
  - CEREBROVASCULAR ACCIDENT [None]
  - DEAFNESS BILATERAL [None]
  - DILATATION ATRIAL [None]
  - DYSPNOEA [None]
  - EMBOLISM [None]
  - INFARCTION [None]
  - NAUSEA [None]
  - TINNITUS [None]
  - VENTRICULAR HYPERTROPHY [None]
  - VERTIGO [None]
